FAERS Safety Report 4511979-1 (Version None)
Quarter: 2004Q4

REPORT INFORMATION
  Report Type: 
  Country: None (occurrence: None)
  Receive Date: 20041129
  Receipt Date: 20031216
  Transmission Date: 20050328
  Serious: No
  Sender: FDA-Public Use
  Company Number: US-BRISTOL-MYERS SQUIBB COMPANY-12459210

PATIENT
  Age: 47 Year
  Sex: Male
  Weight: 83 kg

DRUGS (2)
  1. SUSTIVA [Suspect]
     Indication: HIV INFECTION
     Dosage: EXPIRATION DATE 31-MAY-2004
     Route: 048
  2. COMBIVIR [Concomitant]

REACTIONS (7)
  - ANTISOCIAL BEHAVIOUR [None]
  - DIZZINESS [None]
  - DRUG INEFFECTIVE [None]
  - MOOD SWINGS [None]
  - NIGHTMARE [None]
  - PSYCHOTIC DISORDER [None]
  - VISUAL DISTURBANCE [None]
